FAERS Safety Report 16189420 (Version 1)
Quarter: 2019Q2

REPORT INFORMATION
  Report Type: Spontaneous
  Country: US (occurrence: US)
  Receive Date: 20190411
  Receipt Date: 20190411
  Transmission Date: 20190711
  Serious: Yes (Other)
  Sender: FDA-Public Use
  Company Number: None

PATIENT
  Age: 20 Year
  Sex: Female
  Weight: 60.3 kg

DRUGS (1)
  1. ABSORICA [Suspect]
     Active Substance: ISOTRETINOIN
     Indication: ACNE
     Route: 048
     Dates: start: 20190101, end: 20190301

REACTIONS (4)
  - Depression [None]
  - Decreased appetite [None]
  - Panic attack [None]
  - Mental disorder [None]

NARRATIVE: CASE EVENT DATE: 20190301
